FAERS Safety Report 11097006 (Version 2)
Quarter: 2015Q2

REPORT INFORMATION
  Report Type: Report from Study
  Country: DE (occurrence: DE)
  Receive Date: 20150507
  Receipt Date: 20150603
  Transmission Date: 20150821
  Serious: Yes (Other)
  Sender: FDA-Public Use
  Company Number: DE-CELGENE-DEU-2015034601

PATIENT
  Age: 55 Year
  Sex: Female
  Weight: 55 kg

DRUGS (5)
  1. 5-FU [Concomitant]
     Active Substance: FLUOROURACIL
     Indication: PANCREATIC CARCINOMA
     Route: 065
  2. ABRAXANE [Suspect]
     Active Substance: PACLITAXEL
     Indication: PANCREATIC CARCINOMA
     Dosage: 200 MILLIGRAM
     Route: 041
     Dates: start: 20141023, end: 20150205
  3. GEMCITABINE [Suspect]
     Active Substance: GEMCITABINE\GEMCITABINE HYDROCHLORIDE
     Indication: PANCREATIC CARCINOMA
     Route: 065
     Dates: start: 20141023
  4. MITOMYCIN. [Concomitant]
     Active Substance: MITOMYCIN
     Indication: PANCREATIC CARCINOMA
     Route: 065
  5. GEMCITABINE [Suspect]
     Active Substance: GEMCITABINE\GEMCITABINE HYDROCHLORIDE
     Route: 065
     Dates: start: 20141023, end: 20150205

REACTIONS (3)
  - Anaemia [Not Recovered/Not Resolved]
  - Leukopenia [Recovered/Resolved]
  - Febrile neutropenia [Recovered/Resolved]

NARRATIVE: CASE EVENT DATE: 20141030
